FAERS Safety Report 8131625-8 (Version None)
Quarter: 2012Q1

REPORT INFORMATION
  Report Type: 
  Country: None (occurrence: None)
  Receive Date: 20120208
  Receipt Date: 20120126
  Transmission Date: 20120608
  Serious: Yes (Hospitalization, Other)
  Sender: FDA-Public Use
  Company Number: 2012MA001209

PATIENT
  Sex: Male

DRUGS (6)
  1. AZMACORT [Concomitant]
  2. POTASSIUM CHLORIDE [Concomitant]
  3. LASIX [Concomitant]
  4. CARDIZEM [Concomitant]
  5. DIGOXIN [Suspect]
     Indication: PRODUCT USED FOR UNKNOWN INDICATION
     Dosage: 0.25 MG;QD;PO
     Route: 048
     Dates: start: 20061106, end: 20080505
  6. COREG [Concomitant]

REACTIONS (8)
  - LEUKOCYTOSIS [None]
  - DYSLIPIDAEMIA [None]
  - CEREBROVASCULAR ACCIDENT [None]
  - HYPERTENSION [None]
  - CARDIOACTIVE DRUG LEVEL DECREASED [None]
  - ATRIAL FIBRILLATION [None]
  - LEFT ATRIAL DILATATION [None]
  - MITRAL VALVE STENOSIS [None]
